FAERS Safety Report 7162181-9 (Version None)
Quarter: 2010Q4

REPORT INFORMATION
  Report Type: 
  Country: None (occurrence: None)
  Receive Date: 20101215
  Receipt Date: 20090914
  Transmission Date: 20110411
  Serious: Yes (Other)
  Sender: FDA-Public Use
  Company Number: US-PFIZER INC-2009246073

PATIENT
  Sex: Female
  Weight: 83.9 kg

DRUGS (4)
  1. LYRICA [Suspect]
     Indication: PAIN IN EXTREMITY
     Dosage: UNK
     Dates: start: 20060101
  2. LYRICA [Suspect]
     Indication: NEUROPATHY PERIPHERAL
  3. VALSARTAN [Concomitant]
     Indication: HYPERTENSION
     Dosage: UNK
  4. HYDROCHLOROTHIAZIDE [Concomitant]
     Indication: HYPERTENSION
     Dosage: UNK

REACTIONS (8)
  - BLOOD TRIGLYCERIDES INCREASED [None]
  - DIABETES MELLITUS [None]
  - DIZZINESS [None]
  - DRY MOUTH [None]
  - JOINT SWELLING [None]
  - OEDEMA PERIPHERAL [None]
  - SKIN DISORDER [None]
  - VISUAL IMPAIRMENT [None]
